FAERS Safety Report 8391540-1 (Version None)
Quarter: 2012Q1

REPORT INFORMATION
  Report Type: 
  Country: None (occurrence: None)
  Receive Date: 20120323
  Receipt Date: 20110223
  Transmission Date: 20120608
  Serious: Yes (Other)
  Sender: FDA-Public Use
  Company Number: 163-21880-11023224

PATIENT
  Age: 78 Year
  Sex: Male

DRUGS (9)
  1. LOPRESSOR [Concomitant]
  2. POTASSIUM CHLORIDE [Concomitant]
  3. LASIX [Concomitant]
  4. REVLIMID [Suspect]
     Indication: MULTIPLE MYELOMA
     Dosage: 25 MG, DAILY X 21 DAYS, PO
     Route: 048
     Dates: start: 20110101
  5. VITAMIN B12 [Concomitant]
  6. VITAMIN D [Concomitant]
  7. PERCOCET [Suspect]
     Indication: PRODUCT USED FOR UNKNOWN INDICATION
  8. LOTREL [Concomitant]
  9. VITAMIN B1 TAB [Concomitant]

REACTIONS (2)
  - HAEMATURIA [None]
  - CONSTIPATION [None]
